FAERS Safety Report 13190758 (Version 5)
Quarter: 2018Q2

REPORT INFORMATION
  Report Type: Report from Study
  Country: US (occurrence: US)
  Receive Date: 20170206
  Receipt Date: 20180430
  Transmission Date: 20180711
  Serious: Yes (Other)
  Sender: FDA-Public Use
  Company Number: US-GILEAD-2017-0253698

PATIENT
  Age: 77 Year
  Sex: Female

DRUGS (1)
  1. LEDIPASVIR/SOFOSBUVIR [Suspect]
     Active Substance: LEDIPASVIR\SOFOSBUVIR
     Indication: CHRONIC HEPATITIS C
     Dosage: 1 DF, UNK
     Route: 048
     Dates: start: 20160301, end: 20160601

REACTIONS (26)
  - Hepatitis B [Unknown]
  - Confusional state [Not Recovered/Not Resolved]
  - Cough [Not Recovered/Not Resolved]
  - Speech disorder [Unknown]
  - General physical condition abnormal [Unknown]
  - Headache [Unknown]
  - Malaise [Not Recovered/Not Resolved]
  - Panic attack [Unknown]
  - Alopecia [Unknown]
  - Retinal injury [Not Recovered/Not Resolved]
  - Food allergy [Not Recovered/Not Resolved]
  - Hypersensitivity [Unknown]
  - Chills [Not Recovered/Not Resolved]
  - Deafness [Not Recovered/Not Resolved]
  - Disorientation [Not Recovered/Not Resolved]
  - Amnesia [Not Recovered/Not Resolved]
  - Immune system disorder [Not Recovered/Not Resolved]
  - Oral pain [Not Recovered/Not Resolved]
  - Fatigue [Unknown]
  - Autoimmune disorder [Not Recovered/Not Resolved]
  - Stomatitis [Not Recovered/Not Resolved]
  - Eye disorder [Unknown]
  - Candida infection [Not Recovered/Not Resolved]
  - Emotional disorder [Unknown]
  - Anxiety [Unknown]
  - Breath odour [Unknown]
